FAERS Safety Report 5337240-3 (Version None)
Quarter: 2007Q2

REPORT INFORMATION
  Report Type: 
  Country: None (occurrence: None)
  Receive Date: 20070529
  Receipt Date: 20070525
  Transmission Date: 20071010
  Serious: Yes (Other)
  Sender: FDA-Public Use
  Company Number: A0653064A

PATIENT
  Age: 54 Year
  Sex: Female

DRUGS (4)
  1. FLIXONASE [Suspect]
     Indication: ASTHMA
     Route: 045
  2. SEREVENT [Suspect]
     Indication: ASTHMA
     Route: 055
  3. DIOVAN [Concomitant]
     Dates: start: 20061201
  4. OMEPRAZOLE [Concomitant]
     Dates: start: 20030101

REACTIONS (3)
  - CHEST PAIN [None]
  - DRUG INEFFECTIVE [None]
  - DYSPNOEA [None]
